FAERS Safety Report 19237301 (Version 3)
Quarter: 2021Q2

REPORT INFORMATION
  Report Type: Report from Study
  Country: US (occurrence: US)
  Receive Date: 20210510
  Receipt Date: 20210611
  Transmission Date: 20210717
  Serious: No
  Sender: FDA-Public Use
  Company Number: US-AGIOS-2105US02725

PATIENT

DRUGS (16)
  1. CCNU [Concomitant]
     Active Substance: LOMUSTINE
  2. ZINC. [Concomitant]
     Active Substance: ZINC
  3. BIOTIN [Concomitant]
     Active Substance: BIOTIN
  4. TIBSOVO [Suspect]
     Active Substance: IVOSIDENIB
     Indication: BRAIN NEOPLASM MALIGNANT
     Dosage: 250 MILLIGRAM, 2 TABLETS (500 MG), QD
     Route: 048
     Dates: start: 20210310
  5. NORVASC [Concomitant]
     Active Substance: AMLODIPINE BESYLATE
  6. ZOFRAN [Concomitant]
     Active Substance: ONDANSETRON HYDROCHLORIDE
  7. IMODIUM [Concomitant]
     Active Substance: LOPERAMIDE HYDROCHLORIDE
  8. VITAMIN C [Concomitant]
     Active Substance: ASCORBIC ACID
  9. DECADRON [Concomitant]
     Active Substance: DEXAMETHASONE
  10. GARLIC                             /01570501/ [Concomitant]
     Active Substance: GARLIC
  11. VITAMIN D3 VITAMIN K1 [Concomitant]
  12. AMBIEN [Concomitant]
     Active Substance: ZOLPIDEM TARTRATE
  13. TURMERIC                           /01079602/ [Concomitant]
     Active Substance: HERBALS\TURMERIC
  14. LOMOTIL                            /00384302/ [Concomitant]
     Active Substance: LOPERAMIDE HYDROCHLORIDE
  15. KEPPRA [Concomitant]
     Active Substance: LEVETIRACETAM
  16. FOLIC ACID. [Concomitant]
     Active Substance: FOLIC ACID

REACTIONS (2)
  - Diarrhoea [Recovering/Resolving]
  - Off label use [Unknown]

NARRATIVE: CASE EVENT DATE: 20210310
